FAERS Safety Report 8846557 (Version 3)
Quarter: 2012Q4

REPORT INFORMATION
  Report Type: Report from Study
  Country: IN (occurrence: IN)
  Receive Date: 20121017
  Receipt Date: 20121105
  Transmission Date: 20130627
  Serious: Yes (Hospitalization)
  Sender: FDA-Public Use
  Company Number: IN-VIIV HEALTHCARE LIMITED-B0838079A

PATIENT
  Age: 28 Year
  Sex: Female
  Weight: 59 kg

DRUGS (2)
  1. ZIDOVUDINE / LAMIVUDINE [Suspect]
     Indication: PROPHYLAXIS AGAINST HIV INFECTION
     Route: 048
     Dates: start: 20110623, end: 20121008
  2. NEVIRAPINE [Suspect]
     Indication: PROPHYLAXIS AGAINST HIV INFECTION
     Dosage: 200MG Twice per day
     Route: 048
     Dates: start: 20110624

REACTIONS (1)
  - Neutropenia [Recovered/Resolved]
